FAERS Safety Report 18118051 (Version 1)
Quarter: 2020Q3

REPORT INFORMATION
  Report Type: Spontaneous
  Country: DE (occurrence: DE)
  Receive Date: 20200806
  Receipt Date: 20200806
  Transmission Date: 20201103
  Serious: Yes (Other)
  Sender: FDA-Public Use
  Company Number: DE-MYLANLABS-2020M1069488

PATIENT
  Age: 44 Year
  Sex: Female

DRUGS (3)
  1. PACLITAXEL. [Suspect]
     Active Substance: PACLITAXEL
     Indication: BREAST CANCER
     Dosage: ONCE WEEKLY, 12 TIMES/CYCLES
  2. PERTUZUMAB. [Suspect]
     Active Substance: PERTUZUMAB
     Indication: BREAST CANCER
     Dosage: ONCE EVERY 3 WEEKS, 12 TIMES/CYCLES
  3. TRASTUZUMAB. [Suspect]
     Active Substance: TRASTUZUMAB

REACTIONS (1)
  - Drug-induced liver injury [Recovering/Resolving]
